FAERS Safety Report 5099485-X (Version None)
Quarter: 2006Q3

REPORT INFORMATION
  Report Type: 
  Country: None (occurrence: None)
  Receive Date: 20060906
  Receipt Date: 20060823
  Transmission Date: 20061208
  Serious: Yes (Hospitalization, Other)
  Sender: FDA-Public Use
  Company Number: 2006104227

PATIENT
  Age: 80 Year
  Sex: Male
  Weight: 50.8029 kg

DRUGS (6)
  1. NEURONTIN [Suspect]
     Indication: DRUG USE FOR UNKNOWN INDICATION
     Dates: start: 20060317
  2. ARICEPT [Suspect]
     Indication: DEMENTIA ALZHEIMER'S TYPE
     Dosage: 20 MG (10 MG, 2 IN 1 D),
     Dates: start: 20060101
  3. PLAVIX [Concomitant]
  4. ASPIRIN [Concomitant]
  5. TRAVATAN [Concomitant]
  6. DILTIAZEM [Concomitant]

REACTIONS (5)
  - BELLIGERENCE [None]
  - CEREBROVASCULAR ACCIDENT [None]
  - FEELING ABNORMAL [None]
  - OVERDOSE [None]
  - TRANSIENT ISCHAEMIC ATTACK [None]
